FAERS Safety Report 21796257 (Version 7)
Quarter: 2023Q1

REPORT INFORMATION
  Report Type: Report from Study
  Country: FR (occurrence: None)
  Receive Date: 20221229
  Receipt Date: 20230130
  Transmission Date: 20230417
  Serious: Yes (Death, Hospitalization)
  Sender: FDA-Public Use
  Company Number: FR-Eisai Medical Research-EC-2022-131087

PATIENT
  Age: 55 Year
  Sex: Male
  Weight: 60 kg

DRUGS (6)
  1. LENVATINIB [Suspect]
     Active Substance: LENVATINIB
     Indication: Squamous cell carcinoma of head and neck
     Dosage: STARTING DOSE AT 20 MG, FLUCTUATED DOSAGE
     Route: 048
     Dates: start: 20220422, end: 20220921
  2. LENVATINIB [Suspect]
     Active Substance: LENVATINIB
     Route: 048
     Dates: start: 20220922, end: 20221223
  3. PEMBROLIZUMAB [Suspect]
     Active Substance: PEMBROLIZUMAB
     Indication: Squamous cell carcinoma of head and neck
     Route: 041
     Dates: start: 20220422, end: 20220901
  4. PEMBROLIZUMAB [Suspect]
     Active Substance: PEMBROLIZUMAB
     Route: 041
     Dates: start: 20220922, end: 20221123
  5. PEMBROLIZUMAB [Suspect]
     Active Substance: PEMBROLIZUMAB
     Route: 041
     Dates: start: 20221215
  6. DOLIPRANE [Concomitant]
     Active Substance: ACETAMINOPHEN
     Dates: start: 20220422

REACTIONS (2)
  - Anaemia [Not Recovered/Not Resolved]
  - Respiratory distress [Fatal]

NARRATIVE: CASE EVENT DATE: 20220920
